FAERS Safety Report 15885960 (Version 3)
Quarter: 2019Q1

REPORT INFORMATION
  Report Type: Spontaneous
  Country: US (occurrence: US)
  Receive Date: 20190129
  Receipt Date: 20190314
  Transmission Date: 20190417
  Serious: Yes (Other)
  Sender: FDA-Public Use
  Company Number: US-JNJFOC-20190134266

PATIENT
  Sex: Female
  Weight: 104.31 kg

DRUGS (22)
  1. TRAMADOL HYDROCHLORIDE. [Suspect]
     Active Substance: TRAMADOL HYDROCHLORIDE
     Indication: PAIN
     Route: 065
  2. LIDOCAINE. [Suspect]
     Active Substance: LIDOCAINE
     Indication: ARTHRALGIA
     Route: 061
  3. LIDOCAINE. [Suspect]
     Active Substance: LIDOCAINE
     Indication: BURSITIS
     Route: 061
  4. LIDOCAINE. [Suspect]
     Active Substance: LIDOCAINE
     Indication: ARTHRALGIA
     Route: 061
  5. FUROSEMIDE. [Concomitant]
     Active Substance: FUROSEMIDE
     Indication: HYPERTENSION
     Route: 065
  6. MELOXICAM. [Concomitant]
     Active Substance: MELOXICAM
     Indication: INFLAMMATION
     Route: 065
  7. DEXILANT [Concomitant]
     Active Substance: DEXLANSOPRAZOLE
     Indication: PRODUCT USED FOR UNKNOWN INDICATION
     Route: 065
  8. LIDOCAINE. [Suspect]
     Active Substance: LIDOCAINE
     Indication: FIBROMYALGIA
     Route: 061
  9. POTASSIUM [Concomitant]
     Active Substance: POTASSIUM
     Indication: PRODUCT USED FOR UNKNOWN INDICATION
     Route: 065
  10. LIDOCAINE. [Suspect]
     Active Substance: LIDOCAINE
     Indication: ARTHRALGIA
     Route: 061
  11. CHLORTHALIDONE. [Concomitant]
     Active Substance: CHLORTHALIDONE
     Indication: PRODUCT USED FOR UNKNOWN INDICATION
     Route: 065
  12. LIDOCAINE. [Suspect]
     Active Substance: LIDOCAINE
     Indication: ARTHRALGIA
     Route: 061
     Dates: start: 201812
  13. LIDOCAINE. [Suspect]
     Active Substance: LIDOCAINE
     Indication: FIBROMYALGIA
     Route: 061
  14. HYDROCODONE BITARTRATE AND ACETAMINOPHEN [Concomitant]
     Active Substance: ACETAMINOPHEN\HYDROCODONE BITARTRATE
     Indication: PAIN
     Route: 065
  15. LIDOCAINE. [Suspect]
     Active Substance: LIDOCAINE
     Indication: BURSITIS
     Route: 061
     Dates: start: 201812
  16. CYMBALTA [Concomitant]
     Active Substance: DULOXETINE HYDROCHLORIDE
     Indication: DEPRESSION
     Route: 065
  17. LIDOCAINE. [Suspect]
     Active Substance: LIDOCAINE
     Indication: FIBROMYALGIA
     Route: 061
     Dates: start: 201812
  18. LIDOCAINE. [Suspect]
     Active Substance: LIDOCAINE
     Indication: BURSITIS
     Route: 061
  19. HYDROCODONE BITARTRATE AND ACETAMINOPHEN [Concomitant]
     Active Substance: ACETAMINOPHEN\HYDROCODONE BITARTRATE
     Indication: FIBROMYALGIA
     Route: 065
  20. LIDOCAINE. [Suspect]
     Active Substance: LIDOCAINE
     Indication: FIBROMYALGIA
     Route: 061
  21. LIDOCAINE. [Suspect]
     Active Substance: LIDOCAINE
     Indication: BURSITIS
     Route: 061
  22. ABILIFY [Concomitant]
     Active Substance: ARIPIPRAZOLE
     Indication: PRODUCT USED FOR UNKNOWN INDICATION
     Route: 065

REACTIONS (9)
  - Bipolar I disorder [Unknown]
  - Weight decreased [Unknown]
  - Pain [Unknown]
  - Arthritis [Unknown]
  - Mobility decreased [Unknown]
  - Sedation [Not Recovered/Not Resolved]
  - Overdose [Unknown]
  - Drug ineffective [Unknown]
  - Pain in extremity [Unknown]
